FAERS Safety Report 9331293 (Version 1)
Quarter: 2013Q2

REPORT INFORMATION
  Report Type: Spontaneous
  Country: US (occurrence: US)
  Receive Date: 20130605
  Receipt Date: 20130605
  Transmission Date: 20140414
  Serious: Yes (Other)
  Sender: FDA-Public Use
  Company Number: US-PFIZER INC-2013167778

PATIENT
  Sex: Male

DRUGS (3)
  1. ZOLOFT [Suspect]
     Indication: DEPRESSION
     Dosage: UNK
  2. ZOLOFT [Suspect]
     Indication: SOCIAL PHOBIA
     Dosage: 25 MG, 1X/DAY
  3. ZOLOFT [Suspect]
     Dosage: 75 OR 100 MG, UNK

REACTIONS (3)
  - Inappropriate schedule of drug administration [Unknown]
  - Convulsion [Unknown]
  - Drug ineffective [Unknown]
